FAERS Safety Report 4915618-7 (Version None)
Quarter: 2006Q1

REPORT INFORMATION
  Report Type: 
  Country: None (occurrence: None)
  Receive Date: 20060217
  Receipt Date: 20060208
  Transmission Date: 20060701
  Serious: Yes (Hospitalization)
  Sender: FDA-Public Use
  Company Number: JP-JNJFOC-20060200273

PATIENT
  Sex: Female
  Weight: 46 kg

DRUGS (9)
  1. REMICADE [Suspect]
     Route: 042
  2. REMICADE [Suspect]
     Indication: RHEUMATOID ARTHRITIS
     Route: 042
  3. METHOTREXATE [Suspect]
     Indication: RHEUMATOID ARTHRITIS
     Route: 048
  4. PREDNISOLONE [Suspect]
     Indication: RHEUMATOID ARTHRITIS
     Route: 048
  5. ALFAROL [Concomitant]
     Indication: OSTEOPOROSIS
     Dosage: DOSE IS 1 RG
     Route: 048
  6. SELBEX [Concomitant]
     Route: 048
  7. ROHYPNOL [Concomitant]
     Indication: INSOMNIA
     Route: 048
  8. BONALON [Concomitant]
     Indication: OSTEOPOROSIS
     Route: 048
  9. ISCOTIN [Concomitant]
     Indication: ANTIBIOTIC PROPHYLAXIS
     Route: 048

REACTIONS (1)
  - PNEUMOCYSTIS JIROVECI PNEUMONIA [None]
